FAERS Safety Report 9231125 (Version 2)
Quarter: 2013Q2

REPORT INFORMATION
  Report Type: Spontaneous
  Country: CZ (occurrence: CZ)
  Receive Date: 20130415
  Receipt Date: 20130429
  Transmission Date: 20140414
  Serious: Yes (Hospitalization)
  Sender: FDA-Public Use
  Company Number: CZ-B.I. PHARMACEUTICALS,INC./RIDGEFIELD-2013-BI-10108GD

PATIENT
  Age: 4 Month
  Sex: Male

DRUGS (2)
  1. IPRATROPIUMBROMID [Suspect]
     Indication: PERTUSSIS
     Route: 055
  2. CO-TRIMOXAZOLE [Concomitant]
     Indication: PERTUSSIS

REACTIONS (8)
  - Pertussis [Recovered/Resolved]
  - Pneumothorax spontaneous [Recovered/Resolved]
  - Respiratory distress [Recovered/Resolved]
  - General physical health deterioration [Recovered/Resolved]
  - Pneumonia pseudomonas aeruginosa [Recovered/Resolved]
  - Stenotrophomonas test positive [Recovered/Resolved]
  - Pancreatic insufficiency [Unknown]
  - Bronchospasm [Recovered/Resolved]
